FAERS Safety Report 5922368-7 (Version None)
Quarter: 2008Q4

REPORT INFORMATION
  Report Type: 
  Country: None (occurrence: None)
  Receive Date: 20081017
  Receipt Date: 20081013
  Transmission Date: 20090506
  Serious: Yes (Other)
  Sender: FDA-Public Use
  Company Number: AU-MERCK-0810AUS00083

PATIENT
  Sex: Male

DRUGS (1)
  1. VYTORIN [Suspect]
     Route: 065
     Dates: start: 20080101

REACTIONS (2)
  - CONVULSION [None]
  - JOINT DISLOCATION [None]
